FAERS Safety Report 25208379 (Version 1)
Quarter: 2025Q2

REPORT INFORMATION
  Report Type: Report from Study
  Country: FR (occurrence: FR)
  Receive Date: 20250417
  Receipt Date: 20250417
  Transmission Date: 20250717
  Serious: Yes (Death, Life-Threatening, Hospitalization, Other)
  Sender: CELLTRION
  Company Number: FR-ROCHE-2108505

PATIENT

DRUGS (6)
  1. RITUXIMAB [Suspect]
     Active Substance: RITUXIMAB
     Indication: Cryoglobulinaemia
     Route: 042
  2. RITUXIMAB [Suspect]
     Active Substance: RITUXIMAB
     Indication: Hepatitis C
  3. MYCOPHENOLATE MOFETIL [Suspect]
     Active Substance: MYCOPHENOLATE MOFETIL
     Indication: Cryoglobulinaemia
     Route: 065
  4. MYCOPHENOLATE MOFETIL [Suspect]
     Active Substance: MYCOPHENOLATE MOFETIL
     Indication: Hepatitis C
  5. TACROLIMUS [Suspect]
     Active Substance: TACROLIMUS
     Indication: Cryoglobulinaemia
     Route: 065
  6. TACROLIMUS [Suspect]
     Active Substance: TACROLIMUS
     Indication: Hepatitis C

REACTIONS (10)
  - Haematological infection [Fatal]
  - Systemic candida [Fatal]
  - Candida infection [Fatal]
  - Staphylococcal infection [Fatal]
  - Cerebral haemorrhage [Fatal]
  - Off label use [Fatal]
  - Pneumonia bacterial [Unknown]
  - Pseudomonas infection [Unknown]
  - Klebsiella infection [Unknown]
  - Pseudomonas infection [Unknown]
